FAERS Safety Report 23591391 (Version 2)
Quarter: 2024Q1

REPORT INFORMATION
  Report Type: Report from Study
  Country: MX (occurrence: MX)
  Receive Date: 20240304
  Receipt Date: 20240313
  Transmission Date: 20240410
  Serious: Yes (Hospitalization, Other)
  Sender: FDA-Public Use
  Company Number: MX-002147023-NVSC2024MX045171

PATIENT
  Sex: Male
  Weight: 110.8 kg

DRUGS (1)
  1. EXFORGE [Suspect]
     Active Substance: AMLODIPINE BESYLATE\VALSARTAN
     Indication: Hypertension
     Dosage: 1 DOSAGE FORM (5/160 MG), QD (STARTED 27 OR 29 YEAR AGO)
     Route: 048
     Dates: end: 20240222

REACTIONS (5)
  - Tachycardia [Unknown]
  - Loss of consciousness [Unknown]
  - Syncope [Unknown]
  - Malaise [Unknown]
  - Tachycardia [Recovered/Resolved]

NARRATIVE: CASE EVENT DATE: 20210101
